FAERS Safety Report 5248726-4 (Version None)
Quarter: 2007Q1

REPORT INFORMATION
  Report Type: 
  Country: None (occurrence: None)
  Receive Date: 20070222
  Receipt Date: 20070208
  Transmission Date: 20070707
  Serious: Yes (Other)
  Sender: FDA-Public Use
  Company Number: 233563

PATIENT
  Age: 80 Year
  Sex: Male

DRUGS (8)
  1. RITUXAN [Suspect]
     Indication: NON-HODGKIN'S LYMPHOMA
  2. COUMADIN [Concomitant]
  3. ASPIRIN [Concomitant]
  4. LIPITOR [Concomitant]
  5. ACCUPRIL [Concomitant]
  6. ZETIA [Concomitant]
  7. PREDNISONE TAB [Concomitant]
  8. OXYGEN [Concomitant]

REACTIONS (7)
  - ATRIAL FIBRILLATION [None]
  - CARDIAC MURMUR [None]
  - COMPUTERISED TOMOGRAM ABNORMAL [None]
  - GENERAL PHYSICAL HEALTH DETERIORATION [None]
  - PULMONARY FIBROSIS [None]
  - PULMONARY HYPERTENSION [None]
  - RESPIRATORY FAILURE [None]
